FAERS Safety Report 23146749 (Version 1)
Quarter: 2023Q4

REPORT INFORMATION
  Report Type: Spontaneous
  Country: US (occurrence: US)
  Receive Date: 20231105
  Receipt Date: 20231105
  Transmission Date: 20240110
  Serious: Yes (Hospitalization)
  Sender: FDA-Public Use
  Company Number: US-JNJFOC-20231065898

PATIENT
  Sex: Female

DRUGS (2)
  1. TALVEY [Suspect]
     Active Substance: TALQUETAMAB-TGVS
     Indication: Product used for unknown indication
     Route: 058
  2. TALVEY [Suspect]
     Active Substance: TALQUETAMAB-TGVS
     Dosage: 3RD DOSE OF STEP UP DOSE
     Route: 058

REACTIONS (2)
  - Cytokine release syndrome [Recovered/Resolved]
  - Immune effector cell-associated neurotoxicity syndrome [Recovered/Resolved]
